FAERS Safety Report 26208427 (Version 1)
Quarter: 2025Q4

REPORT INFORMATION
  Report Type: Spontaneous
  Country: US (occurrence: None)
  Receive Date: 20251226
  Receipt Date: 20251226
  Transmission Date: 20260118
  Serious: Yes (Hospitalization)
  Sender: FDA-CTU
  Company Number: None

PATIENT
  Sex: Female

DRUGS (11)
  1. TERIFLUNOMIDE [Suspect]
     Active Substance: TERIFLUNOMIDE
     Indication: Multiple sclerosis
     Dosage: OTHER FREQUENCY : DAILY AT 8:00 AM ;
     Route: 048
     Dates: start: 20230324
  2. BACLOFEN [Concomitant]
     Active Substance: BACLOFEN
  3. DALFAMPRIDIN TAB 10MG ER [Concomitant]
  4. GABAPENTIN CAP 400MG [Concomitant]
  5. GABAPENTIN TAB 800MG [Concomitant]
  6. IBUPROFEN [Concomitant]
     Active Substance: IBUPROFEN
  7. LORATADINE TAB 10MG [Concomitant]
  8. METHIMAZOLE TAB 10MG [Concomitant]
  9. METHIMAZOLE TAB 5MG [Concomitant]
  10. MYRBETRIQ TAB 25MG [Concomitant]
  11. PROMETHAZINE SYP DM [Concomitant]

REACTIONS (4)
  - Multiple sclerosis relapse [None]
  - Hypertonic bladder [None]
  - Myalgia [None]
  - Alopecia [None]
